FAERS Safety Report 6196883-8 (Version None)
Quarter: 2009Q2

REPORT INFORMATION
  Report Type: 
  Country: None (occurrence: None)
  Receive Date: 20090518
  Receipt Date: 20090518
  Transmission Date: 20091009
  Serious: No
  Sender: FDA-Public Use
  Company Number: None

PATIENT
  Age: 78 Year
  Sex: Male

DRUGS (1)
  1. TRAMADOL HCL [Suspect]
     Dosage: USES DAILY, THREE TIMES PER DAY PER INSTRUCTION PREVIOUS 2 YEARS

REACTIONS (3)
  - MYOPATHY [None]
  - PAIN IN EXTREMITY [None]
  - SENSATION OF HEAVINESS [None]
